FAERS Safety Report 10090258 (Version 3)
Quarter: 2014Q2

REPORT INFORMATION
  Report Type: Spontaneous
  Country: US (occurrence: US)
  Receive Date: 20140421
  Receipt Date: 20140626
  Transmission Date: 20141212
  Serious: Yes (Other)
  Sender: FDA-Public Use
  Company Number: US-BRISTOL-MYERS SQUIBB COMPANY-20628459

PATIENT
  Age: 68 Year
  Sex: Male

DRUGS (9)
  1. SPRYCEL (CML) TABS 50 MG [Suspect]
     Indication: CHRONIC MYELOID LEUKAEMIA
     Dosage: 28JAN14,12MAR14
     Route: 048
     Dates: start: 201301
  2. GLEEVEC [Suspect]
  3. FISH OIL [Concomitant]
  4. CENTRUM SILVER [Concomitant]
  5. ASA [Concomitant]
  6. ACIPHEX [Concomitant]
  7. TOPROL [Concomitant]
  8. HYDREA [Concomitant]
  9. ALLOPURINOL [Concomitant]

REACTIONS (10)
  - Fracture [Unknown]
  - Chest pain [Recovered/Resolved]
  - Dyspnoea [Recovered/Resolved]
  - Hypertension [Unknown]
  - Oedema peripheral [Unknown]
  - Rash [Recovering/Resolving]
  - Palpitations [Recovered/Resolved]
  - White blood cell count decreased [Unknown]
  - Red blood cell count decreased [Unknown]
  - Platelet count decreased [Unknown]
